FAERS Safety Report 12934173 (Version 1)
Quarter: 2016Q4

REPORT INFORMATION
  Report Type: Spontaneous
  Country: BR (occurrence: BR)
  Receive Date: 20161111
  Receipt Date: 20161111
  Transmission Date: 20170207
  Serious: Yes (Hospitalization)
  Sender: FDA-Public Use
  Company Number: BR-NOVOPROD-517916

PATIENT
  Sex: Female

DRUGS (1)
  1. LEVEMIR [Suspect]
     Active Substance: INSULIN DETEMIR
     Indication: TYPE 1 DIABETES MELLITUS
     Dosage: 28 IU, QD FOR MORNING (7 YEARS)
     Route: 065

REACTIONS (4)
  - Infection [Unknown]
  - Drug ineffective [Unknown]
  - Renal disorder [Unknown]
  - Diabetic metabolic decompensation [Unknown]
